FAERS Safety Report 21864668 (Version 2)
Quarter: 2023Q1

REPORT INFORMATION
  Report Type: Spontaneous
  Country: US (occurrence: US)
  Receive Date: 20230116
  Receipt Date: 20230123
  Transmission Date: 20230418
  Serious: No
  Sender: FDA-Public Use
  Company Number: US-AMGEN-USASP2022227976

PATIENT
  Age: 55 Year
  Sex: Female

DRUGS (2)
  1. ENBREL [Suspect]
     Active Substance: ETANERCEPT
     Indication: Product used for unknown indication
     Dosage: 50 MILLIGRAM, QWK
     Route: 058
     Dates: start: 20220831
  2. ENBREL [Suspect]
     Active Substance: ETANERCEPT
     Indication: Fibromyalgia

REACTIONS (9)
  - Erythema [Not Recovered/Not Resolved]
  - Pruritus [Not Recovered/Not Resolved]
  - Off label use [Unknown]
  - Swelling [Not Recovered/Not Resolved]
  - Injection site warmth [Not Recovered/Not Resolved]
  - Contusion [Not Recovered/Not Resolved]
  - Arthralgia [Not Recovered/Not Resolved]
  - Movement disorder [Not Recovered/Not Resolved]
  - Pain in extremity [Not Recovered/Not Resolved]

NARRATIVE: CASE EVENT DATE: 20220831
